FAERS Safety Report 7572953-4 (Version None)
Quarter: 2011Q2

REPORT INFORMATION
  Report Type: 
  Country: None (occurrence: None)
  Receive Date: 20110620
  Receipt Date: 20110607
  Transmission Date: 20111010
  Serious: Yes (Other)
  Sender: FDA-Public Use
  Company Number: DKLU1070956

PATIENT

DRUGS (7)
  1. DOXORUBICIN HCL [Suspect]
     Indication: HODGKIN'S DISEASE
     Dosage: 25 MG/M2 MILLIGRAM(S)/SQ.METER, WEEKS 1, 3, 5, 7, 9 AND 11
  2. MUSTARGEN [Suspect]
     Indication: HODGKIN'S DISEASE
     Dosage: 6 MG/M2 MILLIGRAM(S)/SQ.METER, WEEKS 1, 5 AND 9
  3. VINBLASTINE SULFATE [Suspect]
     Indication: HODGKIN'S DISEASE
     Dosage: 6 MG/M2 MILLIGRAM(S)/SG.METER, WEEKS 1, 3, 5, 7, 9, AND 11
  4. VINCRISTINE [Suspect]
     Indication: HODGKIN'S DISEASE
     Dosage: 1.4 MG/M2 MILLIGRAM(S)/SQ.METER, WEEKS 2, 4, 6, 8, 10 AND 12
  5. BLEOMYCIN SULFATE [Suspect]
     Indication: HODGKIN'S DISEASE
     Dosage: WEEKS 2,4,6,8, 10 AND 12
  6. PREDNISONE [Suspect]
     Indication: HODGKIN'S DISEASE
     Dosage: 40 MG/M2 MILLIGRAM(S)/SQ.METER, ALTERNATING DAYS
  7. ETOPOSIDE [Suspect]
     Indication: HODGKIN'S DISEASE
     Dosage: 2 CONSECUTIVE DAYS ON WEEKS 3, 7 AND 11

REACTIONS (1)
  - PULMONARY TOXICITY [None]
